FAERS Safety Report 4754998-2 (Version None)
Quarter: 2005Q3

REPORT INFORMATION
  Report Type: 
  Country: None (occurrence: None)
  Receive Date: 20050829
  Receipt Date: 20050817
  Transmission Date: 20060218
  Serious: Yes (Hospitalization)
  Sender: FDA-Public Use
  Company Number: BR-JNJFOC-20050804841

PATIENT
  Age: 3 Year
  Sex: Female
  Weight: 20 kg

DRUGS (4)
  1. TYLENOL [Suspect]
  2. TYLENOL [Suspect]
     Indication: DRUG USE FOR UNKNOWN INDICATION
  3. CYPROHEPTADINE HCL [Suspect]
     Indication: DRUG USE FOR UNKNOWN INDICATION
  4. ANALGESICS [Suspect]
     Indication: DRUG USE FOR UNKNOWN INDICATION

REACTIONS (3)
  - ACCIDENTAL DRUG INTAKE BY CHILD [None]
  - CONFUSIONAL STATE [None]
  - DYSSTASIA [None]
